FAERS Safety Report 7966469 (Version 3)
Quarter: 2014Q1

REPORT INFORMATION
  Report Type: Spontaneous
  Country: US (occurrence: US)
  Receive Date: 20110531
  Receipt Date: 20140318
  Transmission Date: 20141002
  Serious: Yes (Other)
  Sender: FDA-Public Use
  Company Number: US-JNJFOC-20110511341

PATIENT
  Sex: Male

DRUGS (5)
  1. ULTRAM ER [Suspect]
     Indication: NECK PAIN
     Route: 048
     Dates: end: 20110505
  2. ULTRAM ER [Suspect]
     Indication: BACK PAIN
     Route: 048
     Dates: end: 20110505
  3. XANAX [Suspect]
     Indication: POST-TRAUMATIC STRESS DISORDER
     Route: 048
     Dates: start: 2011, end: 2011
  4. XANAX [Suspect]
     Indication: ANXIETY
     Route: 048
     Dates: start: 2011, end: 2011
  5. ZOLOFT [Suspect]
     Indication: POST-TRAUMATIC STRESS DISORDER
     Route: 048
     Dates: start: 20110509

REACTIONS (1)
  - Post-traumatic stress disorder [Unknown]
